FAERS Safety Report 6373924-6 (Version None)
Quarter: 2009Q3

REPORT INFORMATION
  Report Type: 
  Country: None (occurrence: None)
  Receive Date: 20090924
  Receipt Date: 20090709
  Transmission Date: 20100115
  Serious: Yes (Other)
  Sender: FDA-Public Use
  Company Number: US-ASTRAZENECA-2009UW13254

PATIENT
  Age: 45 Year
  Sex: Male
  Weight: 108.9 kg

DRUGS (6)
  1. SEROQUEL [Suspect]
     Indication: DEPRESSION
     Route: 048
     Dates: start: 20051001, end: 20080501
  2. SEROQUEL [Suspect]
     Indication: BIPOLAR DISORDER
     Route: 048
     Dates: start: 20051001, end: 20080501
  3. SEROQUEL [Suspect]
     Indication: SCHIZOPHRENIA
     Route: 048
     Dates: start: 20051001, end: 20080501
  4. RISPERDAL [Concomitant]
     Dates: start: 20050101
  5. ZYPREXA [Concomitant]
  6. ABILIFY [Concomitant]
     Dates: start: 20050101, end: 20070101

REACTIONS (5)
  - BLOOD CHOLESTEROL INCREASED [None]
  - OBESITY [None]
  - PANCREATITIS [None]
  - TARDIVE DYSKINESIA [None]
  - TYPE 2 DIABETES MELLITUS [None]
